FAERS Safety Report 21596657 (Version 3)
Quarter: 2023Q2

REPORT INFORMATION
  Report Type: Spontaneous
  Country: US (occurrence: US)
  Receive Date: 20221115
  Receipt Date: 20230428
  Transmission Date: 20230722
  Serious: No
  Sender: FDA-Public Use
  Company Number: US-MYLANLABS-2022M1118224

PATIENT
  Age: 50 Year
  Sex: Female
  Weight: 63.5 kg

DRUGS (5)
  1. SEMGLEE (INSULIN GLARGINE-YFGN) [Suspect]
     Active Substance: INSULIN GLARGINE-YFGN
     Indication: Type 1 diabetes mellitus
     Dosage: 10 INTERNATIONAL UNIT, QD (SAME TIME EVERY DAY, IN THE MORNING)
     Route: 058
     Dates: start: 202208
  2. SEMGLEE (INSULIN GLARGINE-YFGN) [Suspect]
     Active Substance: INSULIN GLARGINE-YFGN
     Dosage: 12 INTERNATIONAL UNIT, QD (SAME TIME EVERY DAY, IN THE MORNING)
     Route: 058
  3. SEMGLEE (INSULIN GLARGINE-YFGN) [Suspect]
     Active Substance: INSULIN GLARGINE-YFGN
     Dosage: 14 INTERNATIONAL UNIT, QD (SAME TIME EVERY DAY, IN THE MORNING)
     Route: 058
  4. SEMGLEE (INSULIN GLARGINE-YFGN) [Suspect]
     Active Substance: INSULIN GLARGINE-YFGN
     Dosage: 25 INTERNATIONAL UNIT, QD(TAKEN ONE SHOT A DAY)
     Route: 058
  5. SEMGLEE (INSULIN GLARGINE-YFGN) [Suspect]
     Active Substance: INSULIN GLARGINE-YFGN
     Dosage: 18 INTERNATIONAL UNIT, QD
     Route: 058

REACTIONS (9)
  - Decreased appetite [Unknown]
  - Thirst [Unknown]
  - Asthenia [Unknown]
  - Stress [Unknown]
  - Blood glucose increased [Unknown]
  - Drug ineffective [Unknown]
  - Product storage error [Unknown]
  - Product administration error [Unknown]
  - Product colour issue [Unknown]

NARRATIVE: CASE EVENT DATE: 20221018
